FAERS Safety Report 7152967-9 (Version None)
Quarter: 2010Q4

REPORT INFORMATION
  Report Type: 
  Country: None (occurrence: None)
  Receive Date: 20101130
  Receipt Date: 20101122
  Transmission Date: 20110411
  Serious: Yes (Hospitalization, Other)
  Sender: FDA-Public Use
  Company Number: 20109157

PATIENT
  Sex: Male

DRUGS (7)
  1. LIORESAL [Suspect]
     Indication: MUSCLE SPASTICITY
     Dosage: MCG, DAILY, INTRATHECAL
     Route: 037
  2. DILAUDID [Concomitant]
  3. LORAZEPAM [Concomitant]
  4. KETORALAC [Concomitant]
  5. ACETAMINOPHEN [Concomitant]
  6. DIAZEPAM [Concomitant]
  7. OXYCODONE [Concomitant]

REACTIONS (8)
  - DEPRESSION [None]
  - DIARRHOEA [None]
  - FOOD INTOLERANCE [None]
  - HAEMORRHAGE [None]
  - HYPOPHAGIA [None]
  - MOOD ALTERED [None]
  - PAIN [None]
  - TARDIVE DYSKINESIA [None]
